FAERS Safety Report 8260055-3 (Version None)
Quarter: 2012Q1

REPORT INFORMATION
  Report Type: 
  Country: None (occurrence: None)
  Receive Date: 20120327
  Receipt Date: 20080502
  Transmission Date: 20120608
  Serious: Yes (Other)
  Sender: FDA-Public Use
  Company Number: PHEH2002US05899

PATIENT
  Age: 73 Year
  Sex: Female
  Weight: 58 kg

DRUGS (8)
  1. GLEEVEC [Suspect]
     Indication: CHRONIC MYELOID LEUKAEMIA
     Dosage: 300 MG, QD, ORAL
     Route: 048
  2. NORVASC [Concomitant]
  3. HYZAAR [Concomitant]
  4. SYNTHROID [Concomitant]
  5. CELEBREX [Concomitant]
  6. SPRYCEL [Suspect]
  7. GLEEVEC [Suspect]
     Indication: CHRONIC MYELOID LEUKAEMIA
     Dosage: 400 MG, OD, ORAL, 300 MG,QD, ORAL
     Route: 048
     Dates: start: 20020304
  8. CRESTOR [Concomitant]

REACTIONS (7)
  - PLEURAL EFFUSION [None]
  - CONJUNCTIVAL HAEMORRHAGE [None]
  - EYE PAIN [None]
  - WHITE BLOOD CELL COUNT DECREASED [None]
  - CONJUNCTIVAL OEDEMA [None]
  - DRY EYE [None]
  - CONJUNCTIVITIS [None]
